FAERS Safety Report 4500692-2 (Version None)
Quarter: 2004Q4

REPORT INFORMATION
  Report Type: 
  Country: None (occurrence: None)
  Receive Date: 20041109
  Receipt Date: 20041025
  Transmission Date: 20050328
  Serious: Yes (Hospitalization, Other)
  Sender: FDA-Public Use
  Company Number: USA041081206

PATIENT
  Age: 83 Year
  Sex: Female

DRUGS (3)
  1. FORTEO [Suspect]
     Indication: OSTEOPOROSIS
     Dosage: 20 UG DAY
     Dates: start: 20040930, end: 20041014
  2. ACETAMINOPHEN [Concomitant]
  3. FOSAMAX [Concomitant]

REACTIONS (2)
  - DIVERTICULITIS [None]
  - HAEMATOCHEZIA [None]
